FAERS Safety Report 16838714 (Version 2)
Quarter: 2019Q4

REPORT INFORMATION
  Report Type: Spontaneous
  Country: US (occurrence: US)
  Receive Date: 20190923
  Receipt Date: 20191001
  Transmission Date: 20200122
  Serious: No
  Sender: FDA-Public Use
  Company Number: US-KYOWAKIRIN-2019BKK014578

PATIENT

DRUGS (2)
  1. CRYSVITA [Suspect]
     Active Substance: BUROSUMAB-TWZA
     Indication: HEREDITARY HYPOPHOSPHATAEMIC RICKETS
     Dosage: 90 MG, Q2 WEEKS
     Route: 058
     Dates: start: 20190907
  2. CRYSVITA [Suspect]
     Active Substance: BUROSUMAB-TWZA
     Dosage: 90 MG, Q2 WEEKS
     Route: 058
     Dates: start: 201904, end: 2019

REACTIONS (1)
  - Inappropriate schedule of product administration [Recovered/Resolved]

NARRATIVE: CASE EVENT DATE: 20190903
